FAERS Safety Report 4469773-6 (Version None)
Quarter: 2004Q4

REPORT INFORMATION
  Report Type: 
  Country: None (occurrence: None)
  Receive Date: 20041005
  Receipt Date: 20040930
  Transmission Date: 20050328
  Serious: Yes (Death)
  Sender: FDA-Public Use
  Company Number: 2004AC00408

PATIENT
  Age: 12 Year
  Sex: Female
  Weight: 30 kg

DRUGS (5)
  1. PROPOFOL [Suspect]
     Indication: ANALGESIC EFFECT
     Dosage: 150 MG / HR IV
     Route: 042
  2. PROPOFOL [Suspect]
     Indication: SEDATION
     Dosage: 150 MG / HR IV
     Route: 042
  3. PROPOFOL [Suspect]
     Indication: SURGERY
     Dosage: 150 MG / HR IV
     Route: 042
  4. FENTANYL [Concomitant]
  5. ATENOLOL [Concomitant]

REACTIONS (6)
  - BODY TEMPERATURE INCREASED [None]
  - CARDIOVASCULAR DISORDER [None]
  - CONDITION AGGRAVATED [None]
  - CONGESTIVE CARDIOMYOPATHY [None]
  - LACTIC ACIDOSIS [None]
  - METABOLIC ACIDOSIS [None]
